FAERS Safety Report 18489947 (Version 2)
Quarter: 2021Q1

REPORT INFORMATION
  Report Type: Report from Study
  Country: CA (occurrence: CA)
  Receive Date: 20201111
  Receipt Date: 20210114
  Transmission Date: 20210419
  Serious: Yes (Other)
  Sender: FDA-Public Use
  Company Number: PHHY2018CA129987

PATIENT
  Age: 15 Year
  Sex: Female

DRUGS (4)
  1. ILARIS [Suspect]
     Active Substance: CANAKINUMAB
     Dosage: 150 MG, EVERY 4 WEEKS
     Route: 058
  2. ILARIS [Suspect]
     Active Substance: CANAKINUMAB
     Indication: MUCKLE-WELLS SYNDROME
     Dosage: 150 MG, EVERY 8 WEEKS
     Route: 058
     Dates: start: 20181012
  3. KINERET [Concomitant]
     Active Substance: ANAKINRA
     Indication: PRODUCT USED FOR UNKNOWN INDICATION
     Dosage: UNK
     Route: 065
  4. ACCUTANE [Concomitant]
     Active Substance: ISOTRETINOIN
     Indication: PRODUCT USED FOR UNKNOWN INDICATION
     Dosage: UNK
     Route: 065

REACTIONS (14)
  - Abdominal pain [Unknown]
  - Arthralgia [Unknown]
  - Acne [Recovering/Resolving]
  - Cryopyrin associated periodic syndrome [Unknown]
  - Headache [Recovering/Resolving]
  - Blood pressure decreased [Unknown]
  - C-reactive protein increased [Unknown]
  - Carbon dioxide abnormal [Unknown]
  - Abdominal discomfort [Not Recovered/Not Resolved]
  - Serum amyloid A protein increased [Unknown]
  - Pain [Unknown]
  - Hypoacusis [Not Recovered/Not Resolved]
  - Blood urea abnormal [Unknown]
  - Fatigue [Unknown]

NARRATIVE: CASE EVENT DATE: 20181012
